FAERS Safety Report 5030188-3 (Version None)
Quarter: 2006Q2

REPORT INFORMATION
  Report Type: 
  Country: None (occurrence: None)
  Receive Date: 20060614
  Receipt Date: 20060522
  Transmission Date: 20061013
  Serious: Yes (Other)
  Sender: FDA-Public Use
  Company Number: JP200605005317

PATIENT
  Age: 71 Year
  Sex: Female
  Weight: 42.5 kg

DRUGS (1)
  1. RALOXIFENE HCL [Suspect]
     Indication: OSTEOPOROSIS POSTMENOPAUSAL
     Dosage: 60 MG, DAILY (1/D), ORAL
     Route: 048
     Dates: start: 20050215, end: 20050301

REACTIONS (2)
  - CONSTIPATION [None]
  - SPINAL COMPRESSION FRACTURE [None]
